FAERS Safety Report 5933516-7 (Version None)
Quarter: 2008Q4

REPORT INFORMATION
  Report Type: 
  Country: None (occurrence: None)
  Receive Date: 20081028
  Receipt Date: 20081028
  Transmission Date: 20090506
  Serious: Yes (Other)
  Sender: FDA-Public Use
  Company Number: None

PATIENT
  Age: 30 Year
  Sex: Male
  Weight: 147.419 kg

DRUGS (2)
  1. BUPROPION HCL [Suspect]
     Indication: ATTENTION DEFICIT/HYPERACTIVITY DISORDER
     Dosage: 150 3 DAILY PO
     Route: 048
     Dates: start: 20081022, end: 20081027
  2. BUPROPION HCL [Suspect]
     Indication: DEPRESSION
     Dosage: 150 3 DAILY PO
     Route: 048
     Dates: start: 20081022, end: 20081027

REACTIONS (6)
  - ANXIETY [None]
  - CONDITION AGGRAVATED [None]
  - DEPRESSION [None]
  - DRUG INEFFECTIVE [None]
  - PANIC ATTACK [None]
  - THERAPEUTIC RESPONSE UNEXPECTED WITH DRUG SUBSTITUTION [None]
